FAERS Safety Report 22125874 (Version 1)
Quarter: 2023Q1

REPORT INFORMATION
  Report Type: Spontaneous
  Country: IT (occurrence: IT)
  Receive Date: 20230322
  Receipt Date: 20230322
  Transmission Date: 20230418
  Serious: Yes (Other)
  Sender: FDA-Public Use
  Company Number: None

PATIENT
  Age: 63 Year
  Sex: Female
  Weight: 160 kg

DRUGS (4)
  1. NORVASC [Suspect]
     Active Substance: AMLODIPINE BESYLATE
     Indication: Hypertension
     Dosage: 5 MILLIGRAM, QD (1 TABLET/DAY)
     Route: 048
     Dates: start: 20160128, end: 20170628
  2. SERETIDE [Concomitant]
     Active Substance: FLUTICASONE PROPIONATE\SALMETEROL XINAFOATE
     Indication: Asthma
     Dosage: 50+500MCG 60 DOSES, 2 INHALATIONS IN THE EVENING
     Route: 055
     Dates: start: 20170612
  3. ZADITEN [Concomitant]
     Active Substance: KETOTIFEN FUMARATE
     Indication: Asthma
     Dosage: 1 DOSAGE FORM, BID (1 TABLET BIS IN DAY)
     Route: 048
     Dates: start: 20170612
  4. HYDROCHLOROTHIAZIDE\VALSARTAN [Concomitant]
     Active Substance: HYDROCHLOROTHIAZIDE\VALSARTAN
     Indication: Hypertensive heart disease
     Dosage: 12 COATED TABLETS 160MG+12.5MG, 1 TABLET/DAY
     Route: 048
     Dates: start: 20170612

REACTIONS (3)
  - Cutaneous vasculitis [Recovering/Resolving]
  - Ephelides [Not Recovered/Not Resolved]
  - Peripheral swelling [Recovering/Resolving]

NARRATIVE: CASE EVENT DATE: 20160101
